FAERS Safety Report 4354064-4 (Version None)
Quarter: 2004Q2

REPORT INFORMATION
  Report Type: 
  Country: None (occurrence: None)
  Receive Date: 20040503
  Receipt Date: 20040422
  Transmission Date: 20050107
  Serious: Yes (Other)
  Sender: FDA-Public Use
  Company Number: DE-JNJFOC-20040202812

PATIENT
  Age: 45 Year
  Sex: Male

DRUGS (7)
  1. TOPAMAX [Suspect]
     Indication: EPILEPSY
     Dosage: 400 MG, 2 IN 1 DAY, ORAL
     Route: 048
     Dates: start: 20010910, end: 20030310
  2. PARLODEL [Concomitant]
  3. MADOPAR (MADOPAR) [Concomitant]
  4. COMTESS (ENTACAPONE) [Concomitant]
  5. AMANTADINE HCL [Concomitant]
  6. TEGRETOL [Concomitant]
  7. MIRTAZAPINE [Concomitant]

REACTIONS (8)
  - BRADYPHRENIA [None]
  - CONVULSION [None]
  - DEPRESSION [None]
  - DRUG INEFFECTIVE [None]
  - DRUG INTERACTION [None]
  - HYPOKINESIA [None]
  - MEMORY IMPAIRMENT [None]
  - PARKINSON'S DISEASE [None]
